FAERS Safety Report 8283489-X (Version None)
Quarter: 2012Q2

REPORT INFORMATION
  Report Type: 
  Country: None (occurrence: None)
  Receive Date: 20120413
  Receipt Date: 20120410
  Transmission Date: 20120825
  Serious: Yes (Death, Hospitalization)
  Sender: FDA-Public Use
  Company Number: PHHY2012AU030696

PATIENT
  Sex: Female

DRUGS (6)
  1. EFFEXOR XR [Suspect]
     Indication: DEPRESSION
     Dosage: 150 MG, DAILY
  2. ALCOHOL [Concomitant]
     Dosage: HALF BOTTLE VODKA
  3. MIRTAZAPINE [Suspect]
     Dosage: 270 MG, ONCE/SINGLE
     Route: 048
  4. MIRTAZAPINE [Suspect]
     Indication: DEPRESSION
     Dosage: 30 MG, DAILY
     Dates: start: 20100927
  5. TEMAZEPAM [Concomitant]
     Indication: DEPRESSION
     Dosage: 10 MG, DAILY
  6. EFFEXOR XR [Suspect]
     Dosage: 4.2 G, ONCE/SINGLE
     Dates: start: 20100927

REACTIONS (6)
  - ACIDOSIS [None]
  - TOXICITY TO VARIOUS AGENTS [None]
  - ARRHYTHMIA [None]
  - VENTRICULAR TACHYCARDIA [None]
  - COMPLETED SUICIDE [None]
  - OVERDOSE [None]
